FAERS Safety Report 16153271 (Version 2)
Quarter: 2019Q3

REPORT INFORMATION
  Report Type: Spontaneous
  Country: MX (occurrence: MX)
  Receive Date: 20190403
  Receipt Date: 20190823
  Transmission Date: 20191004
  Serious: Yes (Other)
  Sender: FDA-Public Use
  Company Number: MX-ASTRAZENECA-2019SE50345

PATIENT
  Age: 28795 Day
  Sex: Male
  Weight: 68 kg

DRUGS (5)
  1. CIALIS [Concomitant]
     Active Substance: TADALAFIL
     Indication: OXYGEN THERAPY
     Route: 048
  2. OMEPRAZOL [Concomitant]
     Active Substance: OMEPRAZOLE
     Indication: NAUSEA
     Dosage: AS REQUIRED
     Route: 048
  3. DUAKLIR [Suspect]
     Active Substance: ACLIDINIUM BROMIDE\FORMOTEROL FUMARATE
     Indication: EMPHYSEMA
     Dosage: 340UG/INHAL TWO TIMES A DAY
     Route: 055
     Dates: start: 20181107
  4. OMEPRAZOL [Concomitant]
     Active Substance: OMEPRAZOLE
     Indication: HYPERCHLORHYDRIA
     Dosage: AS REQUIRED
     Route: 048
  5. VANNAIR [Suspect]
     Active Substance: BUDESONIDE\FORMOTEROL FUMARATE DIHYDRATE
     Indication: EMPHYSEMA
     Dosage: 80.0UG/INHAL AS REQUIRED
     Route: 055
     Dates: start: 20181107

REACTIONS (19)
  - Dyspnoea exertional [Not Recovered/Not Resolved]
  - Eye contusion [Unknown]
  - Arthralgia [Unknown]
  - Cerebrovascular accident [Unknown]
  - Fatigue [Unknown]
  - Dyspepsia [Not Recovered/Not Resolved]
  - Dry mouth [Not Recovered/Not Resolved]
  - Throat irritation [Unknown]
  - Nervousness [Unknown]
  - Head injury [Unknown]
  - Skeletal injury [Unknown]
  - Spinal column injury [Unknown]
  - Aphonia [Unknown]
  - Face injury [Unknown]
  - Agitation [Unknown]
  - Dry throat [Unknown]
  - Fall [Unknown]
  - Loss of consciousness [Unknown]
  - Nausea [Not Recovered/Not Resolved]

NARRATIVE: CASE EVENT DATE: 20181107
